FAERS Safety Report 10146520 (Version 1)
Quarter: 2014Q2

REPORT INFORMATION
  Report Type: Spontaneous
  Country: US (occurrence: US)
  Receive Date: 20140501
  Receipt Date: 20140501
  Transmission Date: 20141212
  Serious: Yes (Death, Hospitalization, Other)
  Sender: FDA-Public Use
  Company Number: US-DSJP-DSU-2014-106551

PATIENT
  Sex: 0

DRUGS (1)
  1. BENICAR [Suspect]
     Indication: PRODUCT USED FOR UNKNOWN INDICATION
     Dosage: UNK

REACTIONS (7)
  - Dehydration [Fatal]
  - Renal failure [Fatal]
  - Hepatic failure [Fatal]
  - Multi-organ failure [Fatal]
  - Diarrhoea [None]
  - Gastrostomy [None]
  - Weight decreased [Unknown]
